FAERS Safety Report 18148679 (Version 1)
Quarter: 2020Q3

REPORT INFORMATION
  Report Type: Spontaneous
  Country: US (occurrence: US)
  Receive Date: 20200814
  Receipt Date: 20200814
  Transmission Date: 20201103
  Serious: No
  Sender: FDA-Public Use
  Company Number: US-BAUSCH-BL-2020-022379

PATIENT
  Age: 14 Year
  Sex: Female
  Weight: 66 kg

DRUGS (2)
  1. TRETINOIN CREAM 0.025% [Suspect]
     Active Substance: TRETINOIN
     Indication: ACNE
     Route: 061
     Dates: start: 202005, end: 202007
  2. TRETINOIN CREAM 0.05% [Suspect]
     Active Substance: TRETINOIN
     Indication: ACNE
     Dosage: MORNING AND NIGHT
     Route: 061
     Dates: start: 20200701, end: 20200801

REACTIONS (1)
  - Application site burn [Recovering/Resolving]

NARRATIVE: CASE EVENT DATE: 202007
